FAERS Safety Report 13615252 (Version 1)
Quarter: 2017Q2

REPORT INFORMATION
  Report Type: Report from Study
  Country: US (occurrence: US)
  Receive Date: 20170606
  Receipt Date: 20170606
  Transmission Date: 20170830
  Serious: Yes (Other)
  Sender: FDA-Public Use
  Company Number: US-AMGEN-USASL2017083307

PATIENT
  Age: 69 Year
  Sex: Female

DRUGS (3)
  1. VERAPAMIL [Concomitant]
     Active Substance: VERAPAMIL HYDROCHLORIDE
     Dosage: UNK
  2. PROLIA [Suspect]
     Active Substance: DENOSUMAB
     Indication: PRODUCT USED FOR UNKNOWN INDICATION
     Dosage: UNK
     Route: 065
     Dates: start: 20170418
  3. HUMIRA [Concomitant]
     Active Substance: ADALIMUMAB
     Indication: BACK DISORDER
     Dosage: UNK

REACTIONS (5)
  - Thoracic vertebral fracture [Unknown]
  - Thrombosis [Unknown]
  - Gastrointestinal disorder [Recovered/Resolved]
  - Memory impairment [Unknown]
  - Pulmonary embolism [Unknown]

NARRATIVE: CASE EVENT DATE: 2017
